FAERS Safety Report 6093338-6 (Version None)
Quarter: 2009Q1

REPORT INFORMATION
  Report Type: 
  Country: None (occurrence: None)
  Receive Date: 20090226
  Receipt Date: 20090219
  Transmission Date: 20090719
  Serious: Yes (Death, Life-Threatening, Hospitalization)
  Sender: FDA-Public Use
  Company Number: TW-CELGENEUS-153-20785-06020490

PATIENT
  Age: 62 Year
  Sex: Male

DRUGS (3)
  1. THALIDOMIDE [Suspect]
     Route: 065
     Dates: start: 20030401
  2. THALIDOMIDE [Suspect]
     Route: 065
     Dates: end: 20030101
  3. THALIDOMIDE [Suspect]
     Route: 065

REACTIONS (8)
  - BLOOD CREATININE INCREASED [None]
  - BLOOD LACTATE DEHYDROGENASE INCREASED [None]
  - HYPERKALAEMIA [None]
  - HYPERPHOSPHATAEMIA [None]
  - HYPERURICAEMIA [None]
  - METABOLIC ACIDOSIS [None]
  - TUMOUR LYSIS SYNDROME [None]
  - VENTRICULAR ARRHYTHMIA [None]
